FAERS Safety Report 8349492-6 (Version None)
Quarter: 2012Q2

REPORT INFORMATION
  Report Type: 
  Country: None (occurrence: None)
  Receive Date: 20120510
  Receipt Date: 20120430
  Transmission Date: 20120825
  Serious: Yes (Death)
  Sender: FDA-Public Use
  Company Number: DE-FRI-1000030203

PATIENT
  Sex: Male

DRUGS (3)
  1. DIGITOXIN TAB [Suspect]
     Dosage: 0.07 MG
  2. CORDANUM [Suspect]
     Indication: HYPERTENSION
     Dosage: 50 MG
  3. CITALOPRAM HYDROBROMIDE [Suspect]

REACTIONS (1)
  - DEATH [None]
